FAERS Safety Report 7478713-7 (Version None)
Quarter: 2011Q2

REPORT INFORMATION
  Report Type: 
  Country: None (occurrence: None)
  Receive Date: 20110513
  Receipt Date: 20110429
  Transmission Date: 20111010
  Serious: Yes (Life-Threatening, Hospitalization)
  Sender: FDA-Public Use
  Company Number: US-JNJFOC-20100404265

PATIENT
  Sex: Male
  Weight: 47.8 kg

DRUGS (14)
  1. PEPTAMEN [Concomitant]
  2. IMODIUM [Concomitant]
  3. HUMIRA [Suspect]
     Indication: CROHN'S DISEASE
  4. MELPHALAN HYDROCHLORIDE [Suspect]
     Indication: CROHN'S DISEASE
  5. CHOLECALCIFEROL [Concomitant]
  6. METHOTREXATE [Suspect]
     Indication: CROHN'S DISEASE
  7. FERROUS SULFATE TAB [Concomitant]
  8. FOLIC ACID [Concomitant]
  9. MIRALAX [Concomitant]
  10. INFLIXIMAB [Suspect]
     Indication: CROHN'S DISEASE
     Dosage: PRIOR TO REGISTRY
     Route: 042
  11. RIFAXIMIN [Concomitant]
  12. MORPHINE [Concomitant]
  13. COTRIM [Concomitant]
  14. CALCIUM CARBONATE [Concomitant]

REACTIONS (4)
  - ACUTE MONOCYTIC LEUKAEMIA [None]
  - MULTI-ORGAN FAILURE [None]
  - SHOCK HAEMORRHAGIC [None]
  - TRANSFUSION REACTION [None]
